FAERS Safety Report 12481058 (Version 2)
Quarter: 2016Q2

REPORT INFORMATION
  Report Type: Spontaneous
  Country: US (occurrence: US)
  Receive Date: 20160620
  Receipt Date: 20160627
  Transmission Date: 20160815
  Serious: Yes (Hospitalization)
  Sender: FDA-Public Use
  Company Number: US-JNJFOC-20160607197

PATIENT
  Age: 68 Year
  Sex: Male

DRUGS (14)
  1. XARELTO [Suspect]
     Active Substance: RIVAROXABAN
     Indication: HYPERTENSION
     Route: 048
     Dates: start: 201504, end: 20150428
  2. LISINOPRIL. [Concomitant]
     Active Substance: LISINOPRIL
     Indication: AORTIC VALVE STENOSIS
     Route: 065
  3. XARELTO [Suspect]
     Active Substance: RIVAROXABAN
     Indication: PULMONARY EMBOLISM
     Route: 048
     Dates: start: 20150325, end: 20150423
  4. XARELTO [Suspect]
     Active Substance: RIVAROXABAN
     Indication: THROMBOSIS
     Route: 048
     Dates: start: 201504, end: 20150428
  5. ASPIRIN. [Suspect]
     Active Substance: ASPIRIN
     Indication: AORTIC VALVE STENOSIS
     Route: 065
  6. LISINOPRIL. [Concomitant]
     Active Substance: LISINOPRIL
     Indication: HYPERTENSION
     Route: 065
  7. XARELTO [Suspect]
     Active Substance: RIVAROXABAN
     Indication: AORTIC VALVE STENOSIS
     Route: 048
     Dates: start: 201504, end: 20150428
  8. ASPIRIN. [Suspect]
     Active Substance: ASPIRIN
     Indication: HYPERTENSION
     Route: 065
  9. XARELTO [Suspect]
     Active Substance: RIVAROXABAN
     Indication: PULMONARY EMBOLISM
     Route: 048
     Dates: start: 201504, end: 20150428
  10. XARELTO [Suspect]
     Active Substance: RIVAROXABAN
     Indication: DEEP VEIN THROMBOSIS
     Route: 048
     Dates: start: 20150325, end: 20150423
  11. XARELTO [Suspect]
     Active Substance: RIVAROXABAN
     Indication: DEEP VEIN THROMBOSIS
     Route: 048
     Dates: start: 201504, end: 20150428
  12. XARELTO [Suspect]
     Active Substance: RIVAROXABAN
     Indication: HYPERTENSION
     Route: 048
     Dates: start: 20150325, end: 20150423
  13. XARELTO [Suspect]
     Active Substance: RIVAROXABAN
     Indication: AORTIC VALVE STENOSIS
     Route: 048
     Dates: start: 20150325, end: 20150423
  14. XARELTO [Suspect]
     Active Substance: RIVAROXABAN
     Indication: THROMBOSIS
     Route: 048
     Dates: start: 20150325, end: 20150423

REACTIONS (2)
  - Renal haemorrhage [Not Recovered/Not Resolved]
  - Acute kidney injury [Recovering/Resolving]

NARRATIVE: CASE EVENT DATE: 20150424
